FAERS Safety Report 5313480-4 (Version None)
Quarter: 2007Q1

REPORT INFORMATION
  Report Type: 
  Country: None (occurrence: None)
  Receive Date: 20070130
  Receipt Date: 20060808
  Transmission Date: 20070707
  Serious: Yes (Other)
  Sender: FDA-Public Use
  Company Number: 146557USA

PATIENT
  Age: 28 Year
  Sex: Female

DRUGS (1)
  1. COPAXONE [Suspect]
     Indication: MULTIPLE SCLEROSIS
     Dosage: 20 MG (20 MG,ONCE A DAY), SUBCUTANEOUS
     Route: 058
     Dates: start: 20060501

REACTIONS (9)
  - CHEST PAIN [None]
  - DYSPNOEA [None]
  - ERYTHEMA [None]
  - FLUSHING [None]
  - HYPERHIDROSIS [None]
  - LIP SWELLING [None]
  - LOSS OF CONSCIOUSNESS [None]
  - NAUSEA [None]
  - VISUAL DISTURBANCE [None]
